FAERS Safety Report 10027349 (Version 4)
Quarter: 2014Q4

REPORT INFORMATION
  Report Type: Spontaneous
  Country: JP (occurrence: JP)
  Receive Date: 20140321
  Receipt Date: 20141111
  Transmission Date: 20150528
  Serious: Yes (Hospitalization, Other)
  Sender: FDA-Public Use
  Company Number: JP-ASTRAZENECA-2014SE18541

PATIENT
  Age: 27 Year
  Sex: Male
  Weight: 64 kg

DRUGS (4)
  1. ANAPEINE [Suspect]
     Active Substance: ROPIVACAINE HYDROCHLORIDE
     Indication: EPIDURAL ANAESTHESIA
     Dosage: 7.5 MG/ML, 0.475%, DOSE UNKNOWN
     Route: 008
     Dates: start: 20140313, end: 20140313
  2. ANAPEINE [Suspect]
     Active Substance: ROPIVACAINE HYDROCHLORIDE
     Indication: EPIDURAL ANAESTHESIA
     Dosage: 2 MG/ML, 0.475%, DOSE UNKNOWN
     Route: 008
     Dates: start: 20140313, end: 20140313
  3. ANAPEINE [Suspect]
     Active Substance: ROPIVACAINE HYDROCHLORIDE
     Indication: NERVE BLOCK
     Dosage: 7.5 MG/ML, 0.475%, DOSE UNKNOWN
     Route: 008
     Dates: start: 20140313, end: 20140313
  4. ANAPEINE [Suspect]
     Active Substance: ROPIVACAINE HYDROCHLORIDE
     Indication: NERVE BLOCK
     Dosage: 2 MG/ML, 0.475%, DOSE UNKNOWN
     Route: 008
     Dates: start: 20140313, end: 20140313

REACTIONS (7)
  - Altered state of consciousness [Recovering/Resolving]
  - Tremor [Recovered/Resolved]
  - Tonic convulsion [Recovered/Resolved]
  - Incorrect dose administered by device [Unknown]
  - Blood pressure decreased [Recovered/Resolved]
  - Overdose [Unknown]
  - Toxicity to various agents [Recovered/Resolved]

NARRATIVE: CASE EVENT DATE: 20140313
